FAERS Safety Report 10201307 (Version 2)
Quarter: 2014Q3

REPORT INFORMATION
  Report Type: Spontaneous
  Country: US (occurrence: US)
  Receive Date: 20140528
  Receipt Date: 20140701
  Transmission Date: 20150326
  Serious: Yes (Death)
  Sender: FDA-Public Use
  Company Number: US-PFIZER INC-2014142248

PATIENT
  Age: 74 Year
  Sex: Female

DRUGS (1)
  1. INLYTA [Suspect]
     Active Substance: AXITINIB
     Indication: METASTASES TO BONE
     Dosage: 5 MG, 2X/DAY
     Route: 048
     Dates: start: 20140106, end: 20140505

REACTIONS (1)
  - Death [Fatal]

NARRATIVE: CASE EVENT DATE: 20140506
